FAERS Safety Report 9046522 (Version 1)
Quarter: 2013Q1

REPORT INFORMATION
  Report Type: Spontaneous
  Country: US (occurrence: US)
  Receive Date: 20130204
  Receipt Date: 20130204
  Transmission Date: 20140127
  Serious: Yes (Life-Threatening, Other)
  Sender: FDA-Public Use
  Company Number: US-009507513-1301USA014297

PATIENT
  Age: 60 Year
  Sex: Female

DRUGS (3)
  1. VICTRELIS [Suspect]
     Dosage: UNK
     Route: 048
     Dates: start: 201208, end: 20130111
  2. RIBAVIRIN [Suspect]
     Route: 048
  3. PEGINTRON [Suspect]

REACTIONS (1)
  - Carcinoid tumour [Not Recovered/Not Resolved]
